FAERS Safety Report 5071954-8 (Version None)
Quarter: 2006Q3

REPORT INFORMATION
  Report Type: 
  Country: None (occurrence: None)
  Receive Date: 20060801
  Receipt Date: 20060721
  Transmission Date: 20061208
  Serious: Yes (Other)
  Sender: FDA-Public Use
  Company Number: 2006089773

PATIENT
  Sex: Female

DRUGS (2)
  1. DRAMAMINE [Suspect]
     Dosage: 1 TABLET, ORAL
     Route: 048
     Dates: start: 20060721
  2. DRUG, UNSPECIFIED [Concomitant]

REACTIONS (1)
  - CONVULSION [None]
